FAERS Safety Report 24762857 (Version 1)
Quarter: 2024Q4

REPORT INFORMATION
  Report Type: Other
  Country: FR (occurrence: FR)
  Receive Date: 20241222
  Receipt Date: 20241222
  Transmission Date: 20250115
  Serious: Yes (Hospitalization, Other)
  Sender: DENTSPLY
  Company Number: FR-DENTSPLY-2024SCDP000357

PATIENT
  Age: 30 Year
  Sex: Female
  Weight: 61 kg

DRUGS (5)
  1. EPINEPHRINE BITARTRATE\LIDOCAINE HYDROCHLORIDE [Suspect]
     Active Substance: EPINEPHRINE BITARTRATE\LIDOCAINE HYDROCHLORIDE
     Indication: Delivery
     Dosage: 60 MILLIGRAM TOTAL XYLOCAINE 2% (400 MG/20 ML) ADRENALINE SOLUTION FOR INJECTION IN VIAL
     Route: 008
     Dates: start: 20241114, end: 20241114
  2. EPINEPHRINE BITARTRATE\LIDOCAINE HYDROCHLORIDE [Suspect]
     Active Substance: EPINEPHRINE BITARTRATE\LIDOCAINE HYDROCHLORIDE
     Dosage: 120 MILLIGRAM TOTAL XYLOCAINE 2% (400 MG/20 ML) ADRENALINE SOLUTION FOR INJECTION IN VIAL
     Route: 008
     Dates: start: 20241114, end: 20241114
  3. XYLOCAINE [Suspect]
     Active Substance: LIDOCAINE HYDROCHLORIDE
     Indication: Delivery
     Dosage: 80 MILLIGRAM TOTAL XYLOCAINE 2% WITHOUT PRESERVATIVE, INJECTABLE SOLUTION
     Route: 058
     Dates: start: 20241114, end: 20241114
  4. ROPIVACAINE [Suspect]
     Active Substance: ROPIVACAINE
     Indication: Delivery
     Dosage: 124.2 MILLIGRAM TOTAL
     Route: 008
     Dates: start: 20241114, end: 20241114
  5. ONDANSETRON [Concomitant]
     Active Substance: ONDANSETRON
     Indication: Product used for unknown indication
     Dosage: 4 MILLIGRAM TOTAL
     Route: 042
     Dates: start: 20241114, end: 20241114

REACTIONS (4)
  - Anaesthetic complication neurological [Recovered/Resolved]
  - Anaesthetic complication [Recovered/Resolved]
  - Horner^s syndrome [Recovered/Resolved]
  - Motor dysfunction [Recovered/Resolved]

NARRATIVE: CASE EVENT DATE: 20241114
